FAERS Safety Report 8810156 (Version 2)
Quarter: 2012Q4

REPORT INFORMATION
  Report Type: 
  Country: JP (occurrence: JP)
  Receive Date: 20120926
  Receipt Date: 20121016
  Transmission Date: 20130627
  Serious: Yes (Other)
  Sender: FDA-Public Use
  Company Number: JP-ROCHE-1072255

PATIENT
  Age: 14 Year
  Sex: Female
  Weight: 26 kg

DRUGS (6)
  1. ACTEMRA [Suspect]
     Indication: JUVENILE ARTHRITIS
     Route: 041
     Dates: start: 20120315
  2. ACTEMRA [Suspect]
     Route: 041
  3. PREDONINE [Concomitant]
     Indication: JUVENILE ARTHRITIS
     Route: 048
     Dates: start: 20101124
  4. MOBIC [Concomitant]
     Indication: JUVENILE ARTHRITIS
     Route: 048
     Dates: start: 20101124
  5. SELBEX [Concomitant]
     Indication: PROPHYLAXIS
     Route: 048
     Dates: start: 20101124
  6. BAKTAR [Concomitant]
     Indication: PROPHYLAXIS
     Route: 048
     Dates: start: 20101124

REACTIONS (2)
  - Arthritis [Not Recovered/Not Resolved]
  - Arthritis [Not Recovered/Not Resolved]
